FAERS Safety Report 22604000 (Version 3)
Quarter: 2023Q4

REPORT INFORMATION
  Report Type: Spontaneous
  Country: US (occurrence: US)
  Receive Date: 20230615
  Receipt Date: 20231120
  Transmission Date: 20240110
  Serious: No
  Sender: FDA-Public Use
  Company Number: US-BRISTOL-MYERS SQUIBB COMPANY-2023-084238

PATIENT
  Age: 79 Year
  Sex: Female

DRUGS (1)
  1. ORENCIA [Suspect]
     Active Substance: ABATACEPT
     Indication: Rheumatoid arthritis
     Route: 058
     Dates: start: 202303

REACTIONS (8)
  - Influenza [Unknown]
  - Lung disorder [Unknown]
  - Malaise [Unknown]
  - Joint swelling [Unknown]
  - Arthralgia [Recovered/Resolved]
  - Nasopharyngitis [Unknown]
  - Visual impairment [Unknown]
  - Dyspnoea [Unknown]

NARRATIVE: CASE EVENT DATE: 20230301
